FAERS Safety Report 12782251 (Version 1)
Quarter: 2016Q3

REPORT INFORMATION
  Report Type: Spontaneous
  Country: US (occurrence: US)
  Receive Date: 20160927
  Receipt Date: 20160927
  Transmission Date: 20161109
  Serious: Yes (Other)
  Sender: FDA-Public Use
  Company Number: US-BEH-200712174

PATIENT
  Age: 52 Year
  Sex: Female
  Weight: 68.04 kg

DRUGS (43)
  1. CLINDAMYCIN [Concomitant]
     Active Substance: CLINDAMYCIN\CLINDAMYCIN PHOSPHATE
     Dosage: DAILY DOSE QUANTITY: 900, DAILY DOSE UNIT: MG
     Dates: start: 20070325
  2. ASPIRIN. [Concomitant]
     Active Substance: ASPIRIN
     Dosage: DAILY DOSE QUANTITY: 81, DAILY DOSE UNIT: MG
  3. FLEXERIL [Concomitant]
     Active Substance: CYCLOBENZAPRINE HYDROCHLORIDE
     Dosage: DAILY DOSE QUANTITY: 20, DAILY DOSE UNIT: MG
  4. FIORINAL/COD [Concomitant]
  5. UREA CREAM 40% [Concomitant]
     Route: 061
  6. XOPENEX [Concomitant]
     Active Substance: LEVALBUTEROL HYDROCHLORIDE
     Indication: ASTHMA
     Route: 055
  7. FLONASE [Concomitant]
     Active Substance: FLUTICASONE PROPIONATE
     Indication: ASTHMA
  8. CARIMUNE NF [Suspect]
     Active Substance: HUMAN IMMUNOGLOBULIN G
     Route: 042
     Dates: start: 200705, end: 20070727
  9. CIPRO [Concomitant]
     Active Substance: CIPROFLOXACIN HYDROCHLORIDE
     Indication: URINARY TRACT INFECTION
     Dosage: DAILY DOSE QUANTITY: 500, DAILY DOSE UNIT: MG
     Dates: start: 20070625, end: 20070701
  10. TRILEPTAL [Concomitant]
     Active Substance: OXCARBAZEPINE
  11. ALLEGRA-D [Concomitant]
     Active Substance: FEXOFENADINE\PSEUDOEPHEDRINE
  12. COMPAZINE [Concomitant]
     Active Substance: PROCHLORPERAZINE MALEATE
     Indication: NAUSEA
  13. CORDRAN [Concomitant]
     Active Substance: FLURANDRENOLIDE
     Route: 061
  14. CARIMUNE NF [Suspect]
     Active Substance: HUMAN IMMUNOGLOBULIN G
     Route: 042
     Dates: start: 20070817, end: 20070817
  15. FLUCONAZOLE. [Concomitant]
     Active Substance: FLUCONAZOLE
     Indication: RESPIRATORY MONILIASIS
     Dosage: DAILY DOSE QUANTITY: 100, DAILY DOSE UNIT: MG
     Dates: start: 20070717, end: 20070721
  16. PREVICID [Concomitant]
     Dosage: DAILY DOSE QUANTITY: 60, DAILY DOSE UNIT: MG
  17. VERAPAMIL [Concomitant]
     Active Substance: VERAPAMIL HYDROCHLORIDE
     Indication: HYPERTENSION
  18. METHOTREXATE. [Concomitant]
     Active Substance: METHOTREXATE
     Dates: start: 20070424
  19. RELPAX [Concomitant]
     Active Substance: ELETRIPTAN HYDROBROMIDE
     Indication: MIGRAINE
  20. LOTRISON [Concomitant]
     Route: 061
  21. ASTELIN [Concomitant]
     Active Substance: AZELASTINE HYDROCHLORIDE
     Indication: ASTHMA
  22. PULMICORT TURBUHALER [Concomitant]
     Active Substance: BUDESONIDE
     Indication: ASTHMA
     Route: 055
  23. CARIMUNE NF [Suspect]
     Active Substance: HUMAN IMMUNOGLOBULIN G
     Indication: IMMUNODEFICIENCY COMMON VARIABLE
     Route: 042
     Dates: start: 200701, end: 200704
  24. NYSTATIN ORAL SOLUTION [Concomitant]
     Route: 048
     Dates: start: 20070615
  25. VERAPAMIL [Concomitant]
     Active Substance: VERAPAMIL HYDROCHLORIDE
     Indication: MIGRAINE
     Dosage: DAILY DOSE QUANTITY: 240, DAILY DOSE UNIT: MG
     Dates: start: 200609
  26. PREMARIN [Concomitant]
     Active Substance: ESTROGENS, CONJUGATED
     Dosage: DAILY DOSE QUANTITY: 1.25, DAILY DOSE UNIT: MG
  27. VICODIN [Concomitant]
     Active Substance: ACETAMINOPHEN\HYDROCODONE BITARTRATE
     Indication: PAIN
     Dosage: DAILY DOSE QUANTITY: 22.5, DAILY DOSE UNIT: MG
  28. TYLENOL WITH CODEINE [Concomitant]
     Active Substance: ACETAMINOPHEN\CODEINE PHOSPHATE
     Indication: TOOTH ABSCESS
     Route: 048
  29. LEVAQUIN [Concomitant]
     Active Substance: LEVOFLOXACIN
     Indication: UPPER RESPIRATORY TRACT INFECTION
     Dosage: DAILY DOSE QUANTITY: 500, DAILY DOSE UNIT: MG
     Dates: start: 20070715, end: 20070719
  30. AMITRIPTYLINE [Concomitant]
     Active Substance: AMITRIPTYLINE
     Dosage: DAILY DOSE QUANTITY: 150, DAILY DOSE UNIT: MG
  31. LIPITOR [Concomitant]
     Active Substance: ATORVASTATIN CALCIUM
     Dosage: DAILY DOSE QUANTITY: 10, DAILY DOSE UNIT: MG
  32. FLUCONAZOLE. [Concomitant]
     Active Substance: FLUCONAZOLE
     Dosage: DAILY DOSE QUANTITY: 150, DAILY DOSE UNIT: MG
     Dates: start: 20070815, end: 20070816
  33. FLUCONAZOLE. [Concomitant]
     Active Substance: FLUCONAZOLE
     Indication: CANDIDURIA
  34. PROVIGIL [Concomitant]
     Active Substance: MODAFINIL
     Dosage: DAILY DOSE QUANTITY: 300, DAILY DOSE UNIT: MG
  35. L-THYROXINE [Concomitant]
     Active Substance: LEVOTHYROXINE
     Dosage: DAILY DOSE QUANTITY: 50, DAILY DOSE UNIT: UG
  36. CYMBALTA [Concomitant]
     Active Substance: DULOXETINE HYDROCHLORIDE
     Dosage: DAILY DOSE QUANTITY: 90, DAILY DOSE UNIT: MG
  37. TRAZODONE [Concomitant]
     Active Substance: TRAZODONE HYDROCHLORIDE
     Dosage: DAILY DOSE QUANTITY: 100, DAILY DOSE UNIT: MG
  38. MOBIC [Concomitant]
     Active Substance: MELOXICAM
     Dosage: DAILY DOSE QUANTITY: 15, DAILY DOSE UNIT: MG
  39. TEMAZEPAM. [Concomitant]
     Active Substance: TEMAZEPAM
  40. CLINDAMYCIN [Concomitant]
     Active Substance: CLINDAMYCIN\CLINDAMYCIN PHOSPHATE
  41. TRIAMCINOLONE [Concomitant]
     Active Substance: TRIAMCINOLONE
     Route: 061
  42. AUG BEMATETHESONE [Concomitant]
     Route: 061
  43. ALBUTEROL. [Concomitant]
     Active Substance: ALBUTEROL
     Indication: ASTHMA
     Route: 055

REACTIONS (7)
  - Blood pressure increased [Recovered/Resolved]
  - Asthma [Recovered/Resolved]
  - Nausea [Recovered/Resolved]
  - Vomiting [Recovered/Resolved]
  - Anaphylactic reaction [Recovered/Resolved]
  - Headache [Recovered/Resolved]
  - Dyspnoea [Recovered/Resolved]

NARRATIVE: CASE EVENT DATE: 200705
